FAERS Safety Report 6516933-6 (Version None)
Quarter: 2009Q4

REPORT INFORMATION
  Report Type: 
  Country: None (occurrence: None)
  Receive Date: 20091223
  Receipt Date: 20090912
  Transmission Date: 20100525
  Serious: No
  Sender: FDA-Public Use
  Company Number: US-ASTRAZENECA-2009SE13130

PATIENT
  Age: 81 Year
  Sex: Female
  Weight: 53.1 kg

DRUGS (12)
  1. CRESTOR [Suspect]
     Indication: HYPERCHOLESTEROLAEMIA
     Route: 048
     Dates: start: 20090701
  2. ATENOLOL [Concomitant]
     Indication: HYPERTENSION
  3. CALCIUM CARBONOTE [Concomitant]
     Indication: MINERAL SUPPLEMENTATION
  4. CHROMOMIUM PICOLINATE [Concomitant]
     Indication: MINERAL SUPPLEMENTATION
  5. HYDROCHLOROTHIAZIDE [Concomitant]
     Indication: HYPERTENSION
  6. LEVOTHYROXINE SODIUM [Concomitant]
     Indication: HYPOTHYROIDISM
  7. OMEPRAZOLE [Concomitant]
     Indication: GASTROOESOPHAGEAL REFLUX DISEASE
  8. POTASSIUM CHLORIDE [Concomitant]
     Indication: MINERAL SUPPLEMENTATION
  9. PRAVASTATIN [Concomitant]
     Indication: BLOOD CHOLESTEROL
  10. ZETIA [Concomitant]
     Indication: BLOOD CHOLESTEROL
  11. ALENDRONATE SODIUM [Concomitant]
     Indication: OSTEOPOROSIS
  12. MERCAPTOPURINE [Concomitant]
     Indication: ACUTE LYMPHOCYTIC LEUKAEMIA

REACTIONS (2)
  - BACK PAIN [None]
  - FALL [None]
